FAERS Safety Report 7933028-5 (Version None)
Quarter: 2011Q4

REPORT INFORMATION
  Report Type: 
  Country: None (occurrence: None)
  Receive Date: 20111121
  Receipt Date: 20111121
  Transmission Date: 20120403
  Serious: Yes (Hospitalization)
  Sender: FDA-Public Use
  Company Number: None

PATIENT
  Sex: Female
  Weight: 36 kg

DRUGS (4)
  1. FLUOROURACIL [Suspect]
     Dosage: 536 MG
     Dates: end: 20111115
  2. ELOXATIN [Suspect]
     Dosage: 83 MG
     Dates: end: 20111115
  3. BEVACIZUMAB (RHUMAB VEGF) 200 MG [Suspect]
     Dosage: 200 MG
     Dates: end: 20111115
  4. LEUCOVORIN CALCIUM [Suspect]
     Dosage: 536 MG
     Dates: end: 20111115

REACTIONS (1)
  - JEJUNAL PERFORATION [None]
